FAERS Safety Report 4458599-5 (Version None)
Quarter: 2004Q3

REPORT INFORMATION
  Report Type: 
  Country: None (occurrence: None)
  Receive Date: 20040917
  Receipt Date: 20030813
  Transmission Date: 20050211
  Serious: Yes (Other)
  Sender: FDA-Public Use
  Company Number: US-JNJFOC-20030803059

PATIENT
  Age: 40 Year
  Sex: Female
  Weight: 65.7716 kg

DRUGS (6)
  1. TOPAMAX [Suspect]
     Indication: NEUROPATHY
     Dosage: 25 MG, 2 IN 1 DAY
     Dates: start: 20030805
  2. NOVOLOG (ALL OTHER THERAPEUTIC PRODUCTS) [Concomitant]
  3. LANTUS [Concomitant]
  4. NEURONTIN [Concomitant]
  5. NORPRAMIN [Concomitant]
  6. PERCOCET [Concomitant]

REACTIONS (2)
  - HYPERHIDROSIS [None]
  - HYPOGLYCAEMIA [None]
